FAERS Safety Report 21265830 (Version 1)
Quarter: 2022Q3

REPORT INFORMATION
  Report Type: Spontaneous
  Country: GB (occurrence: GB)
  Receive Date: 20220829
  Receipt Date: 20220829
  Transmission Date: 20221026
  Serious: Yes (Other)
  Sender: FDA-Public Use
  Company Number: None

PATIENT
  Age: 75 Year
  Sex: Male
  Weight: 93 kg

DRUGS (8)
  1. RAMIPRIL [Suspect]
     Active Substance: RAMIPRIL
     Indication: Ill-defined disorder
     Dosage: UNK
     Route: 065
     Dates: start: 20220824
  2. CALCIUM\CHOLECALCIFEROL [Concomitant]
     Active Substance: CALCIUM\CHOLECALCIFEROL
     Indication: Ill-defined disorder
     Dosage: UNK UNK, QD, 1 EVERY DAY
     Route: 065
     Dates: start: 20181003
  3. CANDESARTAN [Concomitant]
     Active Substance: CANDESARTAN
     Indication: Ill-defined disorder
     Dosage: UNK UNK, QD, TAKE ONE ONCE DAILY
     Route: 065
     Dates: start: 20220824
  4. CLOPIDOGREL [Concomitant]
     Active Substance: CLOPIDOGREL BISULFATE
     Indication: Ill-defined disorder
     Dosage: 1 DOSAGE FORM, QD, TAKE ONE TABLET DAILY
     Route: 065
     Dates: start: 20211029
  5. INDAPAMIDE [Concomitant]
     Active Substance: INDAPAMIDE
     Indication: Ill-defined disorder
     Dosage: UNK UNK, QD, TAKE ONE DAILY
     Route: 065
     Dates: start: 20181003
  6. RAMIPRIL [Concomitant]
     Active Substance: RAMIPRIL
     Indication: Ill-defined disorder
     Dosage: UNK UNK, QD, TAKE ONE DAILY FOR BLOOD PRESSURE.
     Route: 065
     Dates: start: 20220701, end: 20220824
  7. RAMIPRIL [Concomitant]
     Active Substance: RAMIPRIL
     Indication: Blood pressure abnormal
  8. ROSUVASTATIN [Concomitant]
     Active Substance: ROSUVASTATIN
     Indication: Ill-defined disorder
     Dosage: UNK UNK, QD, TAKE ONE DAILY
     Route: 065
     Dates: start: 20181003

REACTIONS (2)
  - Enlarged uvula [Unknown]
  - Cough [Unknown]

NARRATIVE: CASE EVENT DATE: 20220824
